FAERS Safety Report 5636261-0 (Version None)
Quarter: 2008Q1

REPORT INFORMATION
  Report Type: 
  Country: None (occurrence: None)
  Receive Date: 20080220
  Receipt Date: 20080220
  Transmission Date: 20080703
  Serious: Yes (Other)
  Sender: FDA-Public Use
  Company Number: None

PATIENT
  Sex: Male
  Weight: 99.7913 kg

DRUGS (1)
  1. FLUOXETINE [Suspect]
     Indication: AGORAPHOBIA
     Dosage: 20MG 1 PER DAY
     Dates: start: 20070301, end: 20070601

REACTIONS (2)
  - ILL-DEFINED DISORDER [None]
  - NERVOUS SYSTEM DISORDER [None]
